FAERS Safety Report 7867852-4 (Version None)
Quarter: 2011Q4

REPORT INFORMATION
  Report Type: 
  Country: None (occurrence: None)
  Receive Date: 20111028
  Receipt Date: 20111025
  Transmission Date: 20120403
  Serious: Yes (Other)
  Sender: FDA-Public Use
  Company Number: GXKR2011DE03134

PATIENT
  Sex: Female
  Weight: 70 kg

DRUGS (4)
  1. OMEP PLUS [Suspect]
     Indication: HELICOBACTER INFECTION
     Dosage: 1 DF, BID
     Route: 048
     Dates: start: 20111014, end: 20111020
  2. RAMIPRIL [Concomitant]
     Indication: HYPERTENSION
     Dosage: 5 MG, QD (0-0-1)
     Route: 048
  3. RAMIPRIL [Concomitant]
     Indication: HYPERTENSION
     Dosage: 1 DF, QD (1-0-0)
     Route: 048
  4. ASPIRIN [Concomitant]
     Indication: PLATELET AGGREGATION INHIBITION
     Dosage: 100 MG, QD (0-1-0)
     Route: 048

REACTIONS (6)
  - DYSGEUSIA [None]
  - ERYTHEMA [None]
  - PRURITUS [None]
  - STOMATITIS [None]
  - DYSPEPSIA [None]
  - ODYNOPHAGIA [None]
